FAERS Safety Report 8021205-7 (Version None)
Quarter: 2012Q1

REPORT INFORMATION
  Report Type: 
  Country: None (occurrence: None)
  Receive Date: 20120104
  Receipt Date: 20111227
  Transmission Date: 20120608
  Serious: Yes (Other)
  Sender: FDA-Public Use
  Company Number: US-BAYER-2011-063072

PATIENT
  Age: 46 Year
  Sex: Female
  Weight: 104.31 kg

DRUGS (7)
  1. DROSPIRENONE AND ETHINYL ESTRADIOL [Suspect]
     Indication: CONTRACEPTION
     Dosage: UNK
     Dates: start: 20060901, end: 20090601
  2. OMEPRAZOLE [Concomitant]
     Dosage: 20 MG, BID
     Route: 048
  3. OMNARIS [Concomitant]
     Route: 045
  4. YASMIN [Suspect]
     Indication: CONTRACEPTION
     Dosage: UNK
     Dates: start: 20060901, end: 20090601
  5. XYZAL [Concomitant]
     Dosage: 5 MG, HS
     Route: 048
  6. NIACIN [Concomitant]
     Dosage: 500 MG, UNK
     Route: 048
  7. PANTANASE [Concomitant]
     Route: 045

REACTIONS (6)
  - ANXIETY [None]
  - EMOTIONAL DISTRESS [None]
  - GENERAL PHYSICAL HEALTH DETERIORATION [None]
  - DEEP VEIN THROMBOSIS [None]
  - PAIN [None]
  - INJURY [None]
